FAERS Safety Report 16025747 (Version 1)
Quarter: 2019Q1

REPORT INFORMATION
  Report Type: Spontaneous
  Country: IT (occurrence: IT)
  Receive Date: 20190302
  Receipt Date: 20190302
  Transmission Date: 20190418
  Serious: Yes (Life-Threatening)
  Sender: FDA-Public Use
  Company Number: IT-ACCORD-109975

PATIENT
  Age: 76 Year
  Sex: Female

DRUGS (6)
  1. LAMOTRIGINE. [Suspect]
     Active Substance: LAMOTRIGINE
     Dosage: NON-THERAPEUTIC DOSAGE ADMINISTERED
     Route: 065
  2. FLUOXETINE [Suspect]
     Active Substance: FLUOXETINE HYDROCHLORIDE
     Dosage: NON-THERAPEUTIC DOSAGE ADMINISTERED
     Route: 065
  3. TRIMIPRAMINE [Suspect]
     Active Substance: TRIMIPRAMINE
     Dosage: NON-THERAPEUTIC DOSAGE ADMINISTERED
     Route: 065
  4. ATORVASTATIN/ATORVASTATIN CALCIUM [Suspect]
     Active Substance: ATORVASTATIN CALCIUM
     Dosage: NON-THERAPEUTIC DOSAGE ADMINISTERED
     Route: 065
  5. NORTRIPTYLINE [Suspect]
     Active Substance: NORTRIPTYLINE
     Dosage: NON-THERAPEUTIC DOSAGE ADMINISTERED
     Route: 065
  6. NEBIVOLOL. [Suspect]
     Active Substance: NEBIVOLOL
     Dosage: NON-THERAPEUTIC DOSAGE ADMINISTERED
     Route: 065

REACTIONS (6)
  - Suicide attempt [Unknown]
  - Traumatic coma [Recovering/Resolving]
  - Miosis [Recovering/Resolving]
  - Incorrect dosage administered [Unknown]
  - Prescription drug used without a prescription [Unknown]
  - Hypotension [Recovering/Resolving]
